FAERS Safety Report 15650378 (Version 2)
Quarter: 2019Q2

REPORT INFORMATION
  Report Type: Report from Study
  Country: DE (occurrence: DE)
  Receive Date: 20181123
  Receipt Date: 20190409
  Transmission Date: 20190711
  Serious: Yes (Hospitalization)
  Sender: FDA-Public Use
  Company Number: DE-ROCHE-2218273

PATIENT
  Sex: Male

DRUGS (16)
  1. IBUPROFEN. [Concomitant]
     Active Substance: IBUPROFEN
  2. WOBENZYM [Concomitant]
  3. HYDROXYCHLOROQUINE [Suspect]
     Active Substance: HYDROXYCHLOROQUINE
     Indication: RHEUMATOID ARTHRITIS
     Route: 065
  4. PANTOZOL [Concomitant]
     Active Substance: PANTOPRAZOLE SODIUM
  5. VITAMIN B12 [Concomitant]
     Active Substance: CYANOCOBALAMIN
  6. SPIRO COMP [Concomitant]
     Active Substance: FUROSEMIDE\SPIRONOLACTONE
  7. SULFASALAZINE DELAYED-RELEASE [Suspect]
     Active Substance: SULFASALAZINE
     Indication: RHEUMATOID ARTHRITIS
     Route: 065
  8. BISOPROLOL [Concomitant]
     Active Substance: BISOPROLOL
  9. CLEXANE [Concomitant]
     Active Substance: ENOXAPARIN SODIUM
  10. ELIQUIS [Concomitant]
     Active Substance: APIXABAN
  11. LYRICA [Concomitant]
     Active Substance: PREGABALIN
  12. TOCILIZUMAB. [Suspect]
     Active Substance: TOCILIZUMAB
     Indication: RHEUMATOID ARTHRITIS
     Dosage: LAST RECENT DOSE GIVEN PRIOR TO THE EVENTS WAS GIVEN ON 03/MAY/2018
     Route: 042
  13. XIPAMID [Concomitant]
     Active Substance: XIPAMIDE
  14. TOREM [Concomitant]
     Active Substance: TORSEMIDE
  15. LODOTRA [Concomitant]
     Active Substance: PREDNISONE
  16. ALLOPURINOL. [Concomitant]
     Active Substance: ALLOPURINOL
     Route: 065

REACTIONS (2)
  - Fall [Unknown]
  - Haematoma infection [Not Recovered/Not Resolved]

NARRATIVE: CASE EVENT DATE: 20180522
